FAERS Safety Report 24139285 (Version 1)
Quarter: 2024Q3

REPORT INFORMATION
  Report Type: Spontaneous
  Country: CN (occurrence: CN)
  Receive Date: 20240726
  Receipt Date: 20240726
  Transmission Date: 20241017
  Serious: Yes (Other)
  Sender: MELINTA THERAPEUTICS
  Company Number: CN-AstraZeneca-2024A161219

PATIENT

DRUGS (2)
  1. METOPROLOL SUCCINATE [Suspect]
     Active Substance: METOPROLOL SUCCINATE
     Indication: Heart rate decreased
     Dosage: 47.5 MILLIGRAM, QD
     Route: 048
     Dates: start: 20240515, end: 20240517
  2. METOPROLOL SUCCINATE [Suspect]
     Active Substance: METOPROLOL SUCCINATE
     Indication: Coronary artery disease
     Dosage: 47.5 MILLIGRAM, QD
     Route: 048
     Dates: start: 20240515, end: 20240517

REACTIONS (6)
  - Arrhythmia [Recovering/Resolving]
  - Arrhythmia supraventricular [Recovering/Resolving]
  - Supraventricular extrasystoles [Recovering/Resolving]
  - Ventricular extrasystoles [Recovering/Resolving]
  - Electrocardiogram PR prolongation [Recovering/Resolving]
  - Atrioventricular block second degree [Recovering/Resolving]

NARRATIVE: CASE EVENT DATE: 20240517
